FAERS Safety Report 6945371-7 (Version None)
Quarter: 2010Q3

REPORT INFORMATION
  Report Type: 
  Country: None (occurrence: None)
  Receive Date: 20100827
  Receipt Date: 20100816
  Transmission Date: 20110219
  Serious: Yes (Disabling)
  Sender: FDA-Public Use
  Company Number: PR-ROCHE-701288

PATIENT
  Sex: Female
  Weight: 55.5 kg

DRUGS (4)
  1. PEGINTERFERON ALFA-2A [Suspect]
     Dosage: DATE OF LAST DOSE PRIOR TO SAE: 11 MARCH 2010.
     Route: 058
     Dates: start: 20090416
  2. RIBAVIRIN [Suspect]
     Dosage: DATE OF LAST DOSE PRIOR TO SAE: 17 MARCH 2010.
     Route: 048
     Dates: start: 20090416
  3. ZANTAC [Concomitant]
  4. ALBAFORT [Concomitant]
     Dates: start: 20090601, end: 20090611

REACTIONS (1)
  - BREAST CANCER [None]
